FAERS Safety Report 9163201 (Version 2)
Quarter: 2013Q3

REPORT INFORMATION
  Report Type: Spontaneous
  Country: US (occurrence: US)
  Receive Date: 20130314
  Receipt Date: 20130712
  Transmission Date: 20140515
  Serious: Yes (Death, Hospitalization)
  Sender: FDA-Public Use
  Company Number: US-GLAXOSMITHKLINE-A1015128A

PATIENT
  Age: 61 Year
  Sex: Female

DRUGS (12)
  1. FLOVENT [Suspect]
     Indication: ASTHMA
     Dosage: 2PUFF TWICE PER DAY
     Route: 055
     Dates: end: 201302
  2. VENTOLIN [Suspect]
     Indication: ASTHMA
     Dosage: 2PUFF SIX TIMES PER DAY
     Route: 055
  3. DULERA [Concomitant]
  4. SPIRIVA [Concomitant]
  5. LACTULOSE [Concomitant]
  6. CLARITIN [Concomitant]
  7. ASPIRIN [Concomitant]
  8. PROZAC [Concomitant]
  9. ANTIBIOTICS [Concomitant]
  10. MORPHINE [Concomitant]
  11. WATER PILL [Concomitant]
  12. UNSPECIFIED MEDICATION [Concomitant]

REACTIONS (1)
  - Chronic obstructive pulmonary disease [Fatal]
